FAERS Safety Report 20655632 (Version 1)
Quarter: 2022Q1

REPORT INFORMATION
  Report Type: Report from Study
  Country: CA (occurrence: CA)
  Receive Date: 20220330
  Receipt Date: 20220330
  Transmission Date: 20220423
  Serious: Yes (Other)
  Sender: FDA-Public Use
  Company Number: CA-GILEAD-2022-0568081

PATIENT
  Age: 47 Year
  Sex: Female

DRUGS (2)
  1. SACITUZUMAB GOVITECAN [Suspect]
     Active Substance: SACITUZUMAB GOVITECAN
     Indication: Triple negative breast cancer
     Dosage: UNK MG
     Route: 042
     Dates: start: 20211209
  2. SACITUZUMAB GOVITECAN [Suspect]
     Active Substance: SACITUZUMAB GOVITECAN
     Dosage: 501 MG, UNKNOWN CYCLE DOSE DECREASED BY 25% AND STOPPED CYCLE 5
     Route: 042
     Dates: end: 2022

REACTIONS (3)
  - Thrombosis [Unknown]
  - Liver function test increased [Unknown]
  - Off label use [Not Recovered/Not Resolved]
